FAERS Safety Report 20162150 (Version 5)
Quarter: 2023Q4

REPORT INFORMATION
  Report Type: Spontaneous
  Country: JP (occurrence: JP)
  Receive Date: 20211208
  Receipt Date: 20231114
  Transmission Date: 20240110
  Serious: Yes (Death, Other)
  Sender: FDA-Public Use
  Company Number: JP-JAZZ-2021-JP-021601

PATIENT
  Age: 30 Year
  Sex: Male
  Weight: 66.6 kg

DRUGS (3)
  1. DEFITELIO [Suspect]
     Active Substance: DEFIBROTIDE SODIUM
     Indication: Venoocclusive liver disease
     Dosage: 25 MILLIGRAM/KILOGRAM, DAILY
     Route: 042
     Dates: start: 20211123, end: 20211124
  2. NOREPINEPHRINE [Concomitant]
     Active Substance: NOREPINEPHRINE
     Indication: Product used for unknown indication
  3. PITRESSIN [Concomitant]
     Active Substance: VASOPRESSIN
     Indication: Gastrointestinal haemorrhage
     Dosage: UNK
     Dates: start: 20211124

REACTIONS (4)
  - Gastrointestinal haemorrhage [Fatal]
  - Adenovirus infection [Fatal]
  - Hepatitis fulminant [Fatal]
  - Acute lymphocytic leukaemia [Fatal]

NARRATIVE: CASE EVENT DATE: 20211101
